APPROVED DRUG PRODUCT: LIDOCAINE HYDROCHLORIDE AND EPINEPHRINE
Active Ingredient: EPINEPHRINE; LIDOCAINE HYDROCHLORIDE
Strength: 0.01MG/ML;2%
Dosage Form/Route: INJECTABLE;INJECTION
Application: A078772 | Product #001
Applicant: HOSPIRA INC
Approved: May 12, 2008 | RLD: No | RS: No | Type: DISCN